FAERS Safety Report 11287845 (Version 1)
Quarter: 2015Q3

REPORT INFORMATION
  Report Type: Spontaneous
  Country: US (occurrence: US)
  Receive Date: 20150721
  Receipt Date: 20150721
  Transmission Date: 20151125
  Serious: No
  Sender: FDA-Public Use
  Company Number: US-UNITED THERAPEUTICS-UNT-2015-001674

PATIENT
  Age: 5 Year
  Sex: Female
  Weight: 18.23 kg

DRUGS (2)
  1. REMODULIN [Suspect]
     Active Substance: TREPROSTINIL
     Indication: PULMONARY ARTERIAL HYPERTENSION
     Dosage: 0.03105 ?G/KG, CONTINUING
     Route: 041
     Dates: start: 20130705
  2. REMODULIN [Suspect]
     Active Substance: TREPROSTINIL
     Dosage: 0.03105 ?G/KG, CONTINUING
     Route: 041
     Dates: start: 20130808

REACTIONS (2)
  - Device related infection [Not Recovered/Not Resolved]
  - Nasopharyngitis [Recovered/Resolved]

NARRATIVE: CASE EVENT DATE: 20150323
